FAERS Safety Report 12665189 (Version 3)
Quarter: 2016Q3

REPORT INFORMATION
  Report Type: Spontaneous
  Country: AU (occurrence: AU)
  Receive Date: 20160818
  Receipt Date: 20160913
  Transmission Date: 20161109
  Serious: Yes (Other)
  Sender: FDA-Public Use
  Company Number: AU-SYMPLMED PHARMACEUTICALS-2016SYMPLMED000296

PATIENT

DRUGS (5)
  1. COVERSYL [Suspect]
     Active Substance: PERINDOPRIL
     Indication: HYPERTENSION
     Dosage: 5 MG, QD
     Route: 048
     Dates: start: 2013, end: 20160527
  2. COVERSYL [Suspect]
     Active Substance: PERINDOPRIL
     Dosage: 5 MG, QD
     Route: 048
     Dates: start: 20160811
  3. COVERSYL [Suspect]
     Active Substance: PERINDOPRIL
     Dosage: 5 MG, QD
     Route: 065
     Dates: start: 20160528, end: 201607
  4. XALATAN [Concomitant]
     Active Substance: LATANOPROST
     Indication: GLAUCOMA
     Dosage: 50 MCG/ML (ONE DROP IN EACH EYE AT NIGHT)
     Route: 047
     Dates: start: 2008
  5. COVERSYL [Suspect]
     Active Substance: PERINDOPRIL
     Dosage: 2 (5MG) TABLETS, QD
     Route: 065
     Dates: start: 201607, end: 20160810

REACTIONS (1)
  - Drug ineffective [Recovered/Resolved]

NARRATIVE: CASE EVENT DATE: 20160528
